FAERS Safety Report 5614700-9 (Version None)
Quarter: 2008Q1

REPORT INFORMATION
  Report Type: 
  Country: None (occurrence: None)
  Receive Date: 20080131
  Receipt Date: 20080116
  Transmission Date: 20080703
  Serious: Yes (Hospitalization)
  Sender: FDA-Public Use
  Company Number: S08-FRA-00308-01

PATIENT
  Age: 79 Year
  Sex: Male

DRUGS (15)
  1. ESCITALOPRAM [Suspect]
     Indication: DEPRESSION
     Dosage: 10 MG BID PO
     Route: 048
     Dates: start: 20071027, end: 20071125
  2. ESCITALOPRAM [Suspect]
     Indication: DEPRESSION
     Dosage: 10 MG QD PO
     Route: 048
     Dates: start: 20070801, end: 20071026
  3. LANSOPRAZOLE [Suspect]
     Dosage: 15 MG QD PO
     Route: 048
     Dates: start: 20071119, end: 20071125
  4. NOCTAMIDE           (LORMETAZEPAM) [Suspect]
     Dosage: 1 GM QD PO
     Route: 048
     Dates: end: 20071119
  5. OLANZAPINE [Concomitant]
  6. ANAFRANIL [Concomitant]
  7. OXAZEPAM [Concomitant]
  8. MODOPAR [Concomitant]
  9. VALSARTAN AND HYDROCHLOROTHIAZIDE [Concomitant]
  10. ATORVASTATIN CALCIUM [Concomitant]
  11. GAVISCON [Concomitant]
  12. FORLAX                (MACROGOL) [Concomitant]
  13. HYDROSOL            (VITAMINS) [Concomitant]
  14. NISIS       (VALSARTAN) [Concomitant]
  15. SPECIAFOLDINE              (FOLIC ACID) [Concomitant]

REACTIONS (3)
  - COMA [None]
  - DRUG INTERACTION [None]
  - STATUS EPILEPTICUS [None]
